FAERS Safety Report 6543421-3 (Version None)
Quarter: 2010Q1

REPORT INFORMATION
  Report Type: 
  Country: None (occurrence: None)
  Receive Date: 20100120
  Receipt Date: 20090914
  Transmission Date: 20100710
  Serious: No
  Sender: FDA-Public Use
  Company Number: US-KINGPHARMUSA00001-K200901129

PATIENT
  Age: 72 Year
  Sex: Female
  Weight: 61.224 kg

DRUGS (1)
  1. INTAL [Suspect]
     Indication: ASTHMA
     Dosage: 2 PUFFS, QID
     Dates: start: 20090728, end: 20090801

REACTIONS (3)
  - DIZZINESS [None]
  - DRUG INEFFECTIVE [None]
  - HEADACHE [None]
